FAERS Safety Report 26200615 (Version 1)
Quarter: 2025Q4

REPORT INFORMATION
  Report Type: Spontaneous
  Country: US (occurrence: US)
  Receive Date: 20251225
  Receipt Date: 20251225
  Transmission Date: 20260117
  Serious: Yes (Hospitalization, Other)
  Sender: BAXTER
  Company Number: US-MLMSERVICE-20251215-PI748794-00150-1

PATIENT
  Age: 36 Year
  Sex: Male

DRUGS (1)
  1. FLUCONAZOLE [Suspect]
     Active Substance: FLUCONAZOLE
     Indication: Rash
     Dosage: UNK
     Route: 065

REACTIONS (16)
  - Immune-mediated myositis [Unknown]
  - Muscular weakness [Unknown]
  - Hypoaesthesia oral [Unknown]
  - Facial paresis [Unknown]
  - Muscular weakness [Unknown]
  - Eyelid ptosis [Unknown]
  - Blood creatine phosphokinase increased [Unknown]
  - Myoglobin blood increased [Unknown]
  - Aspartate aminotransferase increased [Unknown]
  - Alanine aminotransferase [Unknown]
  - White matter lesion [Unknown]
  - Neuromyopathy [Unknown]
  - Inflammation [Unknown]
  - Necrosis [Unknown]
  - Dysphagia [Unknown]
  - Dysarthria [Unknown]
